FAERS Safety Report 22323084 (Version 1)
Quarter: 2023Q2

REPORT INFORMATION
  Report Type: Spontaneous
  Country: US (occurrence: None)
  Receive Date: 20230516
  Receipt Date: 20230516
  Transmission Date: 20230721
  Serious: No
  Sender: FDA-Public Use
  Company Number: 2023A104026

PATIENT
  Age: 87 Year
  Sex: Female

DRUGS (1)
  1. SYMBICORT [Suspect]
     Active Substance: BUDESONIDE\FORMOTEROL FUMARATE DIHYDRATE
     Route: 055

REACTIONS (8)
  - Dysphonia [Unknown]
  - Oropharyngeal discomfort [Unknown]
  - Illness [Unknown]
  - Tremor [Unknown]
  - Headache [Unknown]
  - Syncope [Unknown]
  - Dyspnoea [Unknown]
  - Device malfunction [Unknown]
